FAERS Safety Report 16290926 (Version 2)
Quarter: 2019Q4

REPORT INFORMATION
  Report Type: Report from Study
  Country: GT (occurrence: GT)
  Receive Date: 20190509
  Receipt Date: 20191021
  Transmission Date: 20200122
  Serious: Yes (Other)
  Sender: FDA-Public Use
  Company Number: PHHY2019GT104224

PATIENT
  Age: 69 Year
  Sex: Female

DRUGS (3)
  1. VYMADA [Suspect]
     Active Substance: SACUBITRIL\VALSARTAN
     Indication: PRODUCT USED FOR UNKNOWN INDICATION
     Dosage: 100 MG (SACUBITRIL 49MG AND VALSARTAN 51MG), UNK
     Route: 065
  2. VYMADA [Suspect]
     Active Substance: SACUBITRIL\VALSARTAN
     Dosage: 100 MG (SACUBITRIL 49MG AND VALSARTAN 51MG), UNK
     Route: 065
     Dates: start: 20191010
  3. VYMADA [Suspect]
     Active Substance: SACUBITRIL\VALSARTAN
     Dosage: 50 MG (SACUBITRIL 24 MG/ VALSARTAN 26 MG)
     Route: 065

REACTIONS (6)
  - Malaise [Unknown]
  - Hypoacusis [Unknown]
  - Pain in extremity [Unknown]
  - Angina pectoris [Unknown]
  - Musculoskeletal chest pain [Unknown]
  - Pulmonary pain [Unknown]
